FAERS Safety Report 12937113 (Version 1)
Quarter: 2016Q4

REPORT INFORMATION
  Report Type: Spontaneous
  Country: IR (occurrence: IR)
  Receive Date: 20161114
  Receipt Date: 20161114
  Transmission Date: 20170207
  Serious: Yes (Other)
  Sender: FDA-Public Use
  Company Number: IR-BAUSCH-BL-2016-027252

PATIENT
  Age: 43 Year
  Sex: Female

DRUGS (1)
  1. METRONIDAZOLE. [Suspect]
     Active Substance: METRONIDAZOLE
     Indication: HELICOBACTER INFECTION
     Route: 065

REACTIONS (2)
  - Toxic encephalopathy [Recovering/Resolving]
  - Deafness bilateral [Recovering/Resolving]
